FAERS Safety Report 4488566-7 (Version None)
Quarter: 2004Q4

REPORT INFORMATION
  Report Type: 
  Country: None (occurrence: None)
  Receive Date: 20041028
  Receipt Date: 20041028
  Transmission Date: 20050328
  Serious: No
  Sender: FDA-Public Use
  Company Number: None

PATIENT
  Age: 66 Year
  Sex: Female
  Weight: 73.0291 kg

DRUGS (2)
  1. METOPROLOL 50 MG [Suspect]
     Indication: CORONARY ARTERY SURGERY
     Dosage: 50 MG QD
     Dates: start: 20030904
  2. METOPROLOL 50 MG [Suspect]
     Indication: HYPERTENSION
     Dosage: 50 MG QD
     Dates: start: 20030904

REACTIONS (1)
  - VERTIGO [None]
